FAERS Safety Report 20553724 (Version 3)
Quarter: 2022Q1

REPORT INFORMATION
  Report Type: Spontaneous
  Country: CN (occurrence: CN)
  Receive Date: 20220304
  Receipt Date: 20220323
  Transmission Date: 20220423
  Serious: Yes (Death)
  Sender: FDA-Public Use
  Company Number: CN-PARATEK PHARMACEUTICALS, INC.-2022PTK00065

PATIENT
  Age: 85 Year
  Sex: Male

DRUGS (1)
  1. NUZYRA [Suspect]
     Active Substance: OMADACYCLINE
     Indication: Enterococcal infection
     Dosage: 2 INJ. OF INITIAL DOSE FOLLOWED BY 1 INJ./DAY
     Route: 042
     Dates: start: 20220218, end: 20220224

REACTIONS (2)
  - Acinetobacter infection [Fatal]
  - Sepsis [Fatal]

NARRATIVE: CASE EVENT DATE: 20220223
